FAERS Safety Report 7956659-5 (Version None)
Quarter: 2011Q4

REPORT INFORMATION
  Report Type: 
  Country: None (occurrence: None)
  Receive Date: 20111130
  Receipt Date: 20111114
  Transmission Date: 20120403
  Serious: Yes (Other)
  Sender: FDA-Public Use
  Company Number: 2011AP002699

PATIENT
  Age: 84 Year
  Sex: Female

DRUGS (4)
  1. ENZIRA (INFLUENZA VACCINE) [Concomitant]
  2. NOVOMIX /01758401/ [Concomitant]
  3. RAMIPRIL [Suspect]
     Dates: start: 20111101
  4. CALCIUM CHANNEL BLOCKERS (CALCIUM CHANNEL BLOCKERS) [Concomitant]

REACTIONS (3)
  - LIP SWELLING [None]
  - SWOLLEN TONGUE [None]
  - OEDEMA MOUTH [None]
